FAERS Safety Report 17429655 (Version 1)
Quarter: 2020Q1

REPORT INFORMATION
  Report Type: Spontaneous
  Country: US (occurrence: US)
  Receive Date: 20200218
  Receipt Date: 20200218
  Transmission Date: 20200409
  Serious: Yes (Other)
  Sender: FDA-Public Use
  Company Number: US-ROCHE-2547660

PATIENT
  Sex: Female

DRUGS (3)
  1. AUBAGIO [Concomitant]
     Active Substance: TERIFLUNOMIDE
  2. LEVOTHYROXINE. [Concomitant]
     Active Substance: LEVOTHYROXINE
  3. OCREVUS [Suspect]
     Active Substance: OCRELIZUMAB
     Indication: PRODUCT USED FOR UNKNOWN INDICATION
     Route: 065

REACTIONS (5)
  - Eye infection viral [Not Recovered/Not Resolved]
  - Fatigue [Unknown]
  - Urinary tract infection [Not Recovered/Not Resolved]
  - Influenza [Unknown]
  - Nausea [Unknown]
